FAERS Safety Report 17282136 (Version 1)
Quarter: 2020Q1

REPORT INFORMATION
  Report Type: Spontaneous
  Country: US (occurrence: US)
  Receive Date: 20200116
  Receipt Date: 20200116
  Transmission Date: 20200409
  Serious: Yes (Other)
  Sender: FDA-Public Use
  Company Number: None

PATIENT
  Age: 46 Year
  Sex: Female
  Weight: 57.15 kg

DRUGS (1)
  1. EMGALITY [Suspect]
     Active Substance: GALCANEZUMAB-GNLM
     Indication: MIGRAINE
     Route: 058
     Dates: end: 20200101

REACTIONS (5)
  - Swelling face [None]
  - Depression [None]
  - Depressed mood [None]
  - Pruritus [None]
  - Crying [None]

NARRATIVE: CASE EVENT DATE: 20200101
